FAERS Safety Report 20658188 (Version 2)
Quarter: 2022Q3

REPORT INFORMATION
  Report Type: Spontaneous
  Country: CN (occurrence: None)
  Receive Date: 20220331
  Receipt Date: 20220801
  Transmission Date: 20221026
  Serious: Yes (Other)
  Sender: FDA-Public Use
  Company Number: CN-ROCHE-3062336

PATIENT
  Age: 68 Year
  Sex: Female

DRUGS (50)
  1. MABTHERA [Suspect]
     Active Substance: RITUXIMAB
     Indication: Follicular lymphoma stage IV
     Route: 065
  2. GAZYVA [Concomitant]
     Active Substance: OBINUTUZUMAB
     Indication: Follicular lymphoma stage IV
     Route: 042
     Dates: start: 20220205
  3. GAZYVA [Concomitant]
     Active Substance: OBINUTUZUMAB
     Route: 042
     Dates: start: 20220212
  4. GAZYVA [Concomitant]
     Active Substance: OBINUTUZUMAB
     Route: 042
     Dates: start: 20220219
  5. GAZYVA [Concomitant]
     Active Substance: OBINUTUZUMAB
     Dosage: OBINUTUZUMAB + CPOD
     Dates: start: 20220302
  6. GAZYVA [Concomitant]
     Active Substance: OBINUTUZUMAB
     Dosage: GB
     Dates: start: 20220404
  7. GAZYVA [Concomitant]
     Active Substance: OBINUTUZUMAB
     Dosage: GB
     Dates: start: 20220519
  8. GAZYVA [Concomitant]
     Active Substance: OBINUTUZUMAB
     Dosage: GB
     Dates: start: 20220630
  9. ETOPOSIDE [Concomitant]
     Active Substance: ETOPOSIDE
     Indication: Follicular lymphoma stage IV
     Dosage: CTOP-E
     Dates: end: 201701
  10. ETOPOSIDE [Concomitant]
     Active Substance: ETOPOSIDE
     Dosage: ESHAP
     Dates: end: 201806
  11. METHYLPREDNISOLONE [Concomitant]
     Active Substance: METHYLPREDNISOLONE
     Indication: Follicular lymphoma stage IV
     Dosage: ESHAP
     Dates: end: 201806
  12. CISPLATIN [Concomitant]
     Active Substance: CISPLATIN
     Indication: Follicular lymphoma stage IV
     Dosage: ESHAP, GDP
     Dates: end: 201806
  13. CYTARABINE [Concomitant]
     Active Substance: CYTARABINE
     Indication: Follicular lymphoma stage IV
     Dosage: ESHAP
     Dates: end: 201806
  14. GEMCITABINE [Concomitant]
     Active Substance: GEMCITABINE
     Indication: Follicular lymphoma stage IV
     Dosage: 03/MAY/2021 AND 27/MAY/2021, GEMOX
  15. GEMCITABINE [Concomitant]
     Active Substance: GEMCITABINE
     Dosage: GDP
  16. DEXAMETHASONE [Concomitant]
     Active Substance: DEXAMETHASONE
     Indication: Follicular lymphoma stage IV
     Dosage: 07/JUL/2021, 07/SEP/2021, 28/SEP/2021, 23/OCT/2021, 21/NOV/2021 AND 21/DEC/2021, CPOD
  17. DEXAMETHASONE [Concomitant]
     Active Substance: DEXAMETHASONE
     Dosage: OBINUTUZUMAB + CPOD
     Dates: start: 20220302
  18. DEXAMETHASONE [Concomitant]
     Active Substance: DEXAMETHASONE
     Dosage: GDP
  19. DEXAMETHASONE [Concomitant]
     Active Substance: DEXAMETHASONE
     Dosage: CPOD ON DAY 2-6 (THE 7TH CYCLE)
  20. OXALIPLATIN [Concomitant]
     Active Substance: OXALIPLATIN
     Indication: Follicular lymphoma stage IV
     Dosage: 03/MAY/2021 AND 27/MAY/2021, GEMOX
  21. DOXORUBICIN HYDROCHLORIDE [Concomitant]
     Active Substance: DOXORUBICIN HYDROCHLORIDE
     Indication: Follicular lymphoma stage IV
     Dosage: 07/JUL/2021, 07/SEP/2021, 28/SEP/2021, 23/OCT/2021, 21/NOV/2021 AND 21/DEC/2021, CPOD
  22. DOXORUBICIN HYDROCHLORIDE [Concomitant]
     Active Substance: DOXORUBICIN HYDROCHLORIDE
     Dosage: OBINUTUZUMAB + CPOD
     Dates: start: 20220302
  23. DOXORUBICIN HYDROCHLORIDE [Concomitant]
     Active Substance: DOXORUBICIN HYDROCHLORIDE
     Dosage: CPOD ON DAY 2-6 (THE 7TH CYCLE)
  24. CHLORAMBUCIL [Concomitant]
     Active Substance: CHLORAMBUCIL
     Indication: Follicular lymphoma stage IV
  25. CYCLOPHOSPHAMIDE [Concomitant]
     Active Substance: CYCLOPHOSPHAMIDE
     Indication: Follicular lymphoma stage IV
     Dosage: CHOP, CTOP
  26. CYCLOPHOSPHAMIDE [Concomitant]
     Active Substance: CYCLOPHOSPHAMIDE
     Dosage: CTOP-E
     Dates: end: 201701
  27. CYCLOPHOSPHAMIDE [Concomitant]
     Active Substance: CYCLOPHOSPHAMIDE
     Dosage: CTOP
     Dates: end: 202008
  28. CYCLOPHOSPHAMIDE [Concomitant]
     Active Substance: CYCLOPHOSPHAMIDE
     Dosage: COP
  29. CYCLOPHOSPHAMIDE [Concomitant]
     Active Substance: CYCLOPHOSPHAMIDE
     Dosage: 07/JUL/2021, 07/SEP/2021, 28/SEP/2021, 23/OCT/2021, 21/NOV/2021 AND 21//DEC/2021, CPOD
  30. CYCLOPHOSPHAMIDE [Concomitant]
     Active Substance: CYCLOPHOSPHAMIDE
     Dosage: CPOD ON DAY 2-6 (THE 7TH CYCLE)
  31. CYCLOPHOSPHAMIDE [Concomitant]
     Active Substance: CYCLOPHOSPHAMIDE
     Dosage: OBINUTUZUMAB + CPOD
     Dates: start: 20220302
  32. DOXORUBICIN [Concomitant]
     Active Substance: DOXORUBICIN
     Indication: Follicular lymphoma stage IV
     Dosage: CHOP
  33. VINCRISTINE [Concomitant]
     Active Substance: VINCRISTINE
     Indication: Follicular lymphoma stage IV
     Dosage: CHOP, CTOP
  34. VINCRISTINE [Concomitant]
     Active Substance: VINCRISTINE
     Dosage: CTOP-E
     Dates: end: 201701
  35. VINCRISTINE [Concomitant]
     Active Substance: VINCRISTINE
     Dosage: CTOP
     Dates: end: 202008
  36. VINCRISTINE [Concomitant]
     Active Substance: VINCRISTINE
     Dosage: COP
  37. VINCRISTINE [Concomitant]
     Active Substance: VINCRISTINE
     Dosage: 07/JUL/2021, 07/SEP/2021, 28/SEP/2021, 23/OCT/2021, 21/NOV/2021 AND 21//DEC/2021, CPOD
  38. VINCRISTINE [Concomitant]
     Active Substance: VINCRISTINE
     Dosage: CPOD ON DAY 2-6 (THE 7TH CYCLE)
  39. VINCRISTINE [Concomitant]
     Active Substance: VINCRISTINE
     Dosage: OBINUTUZUMAB + CPOD
     Dates: start: 20220302
  40. PREDNISONE [Concomitant]
     Active Substance: PREDNISONE
     Indication: Follicular lymphoma stage IV
     Dosage: CHOP, CTOP
  41. PREDNISONE [Concomitant]
     Active Substance: PREDNISONE
     Dosage: CTOP-E
     Dates: end: 201701
  42. PREDNISONE [Concomitant]
     Active Substance: PREDNISONE
     Dosage: CTOP
     Dates: end: 202008
  43. PREDNISONE [Concomitant]
     Active Substance: PREDNISONE
     Dosage: COP
  44. PIRARUBICIN [Concomitant]
     Active Substance: PIRARUBICIN
     Indication: Follicular lymphoma stage IV
     Dosage: CTOP
  45. PIRARUBICIN [Concomitant]
     Active Substance: PIRARUBICIN
     Dosage: CTOP-E
     Dates: end: 201701
  46. PIRARUBICIN [Concomitant]
     Active Substance: PIRARUBICIN
     Dosage: CTOP
     Dates: end: 202008
  47. BENDAMUSTINE [Concomitant]
     Active Substance: BENDAMUSTINE
     Indication: Follicular lymphoma stage IV
     Dosage: ON DAY 2
  48. BENDAMUSTINE [Concomitant]
     Active Substance: BENDAMUSTINE
     Dosage: ON DAY 3
  49. BENDAMUSTINE [Concomitant]
     Active Substance: BENDAMUSTINE
     Dosage: GB
     Dates: start: 20220519
  50. BENDAMUSTINE [Concomitant]
     Active Substance: BENDAMUSTINE
     Dosage: GB
     Dates: start: 20220630

REACTIONS (3)
  - Infusion related reaction [Unknown]
  - Myelosuppression [Unknown]
  - Pneumonia [Unknown]
